FAERS Safety Report 6172387-3 (Version None)
Quarter: 2009Q2

REPORT INFORMATION
  Report Type: 
  Country: None (occurrence: None)
  Receive Date: 20090429
  Receipt Date: 20090420
  Transmission Date: 20091009
  Serious: Yes (Hospitalization, Other)
  Sender: FDA-Public Use
  Company Number: PHHY2009FR07400

PATIENT
  Sex: Male
  Weight: 166 kg

DRUGS (3)
  1. GLEEVEC [Suspect]
     Indication: CHRONIC MYELOID LEUKAEMIA
     Dosage: 400 MG/DAY
     Route: 048
     Dates: start: 20061026
  2. MEDROL [Concomitant]
     Dosage: 16 MG, QD
     Route: 048
  3. ESOMEPRAZOLE [Concomitant]
     Dosage: 20 MG, QD
     Route: 048

REACTIONS (12)
  - ALANINE AMINOTRANSFERASE INCREASED [None]
  - BILIARY CYST [None]
  - BLOOD UREA INCREASED [None]
  - GAMMA-GLUTAMYLTRANSFERASE INCREASED [None]
  - HEPATIC CYST [None]
  - LYMPHOPENIA [None]
  - MALIGNANT MELANOMA [None]
  - METASTASES TO SPINE [None]
  - METASTATIC MALIGNANT MELANOMA [None]
  - NODULE [None]
  - SPLENIC CYST [None]
  - SURGERY [None]
